FAERS Safety Report 10560584 (Version 5)
Quarter: 2015Q1

REPORT INFORMATION
  Report Type: Spontaneous
  Country: US (occurrence: US)
  Receive Date: 20141103
  Receipt Date: 20150224
  Transmission Date: 20150720
  Serious: Yes (Hospitalization)
  Sender: FDA-Public Use
  Company Number: US-ACTELION-A-NJ2014-106842

PATIENT
  Age: 67 Year
  Sex: Female

DRUGS (15)
  1. NIACIN. [Concomitant]
     Active Substance: NIACIN
  2. DAPSON [Concomitant]
     Active Substance: DAPSONE
  3. SILDENAFIL. [Concomitant]
     Active Substance: SILDENAFIL
  4. PAROXETINE [Concomitant]
     Active Substance: PAROXETINE\PAROXETINE HYDROCHLORIDE
  5. OPSUMIT [Suspect]
     Active Substance: MACITENTAN
     Indication: PULMONARY HYPERTENSION
     Dosage: 10 MG
     Route: 048
     Dates: start: 20140924
  6. PAXIL [Concomitant]
     Active Substance: PAROXETINE HYDROCHLORIDE
  7. MYCOPHENOLATE [Concomitant]
     Active Substance: MYCOPHENOLIC ACID
  8. COREG [Concomitant]
     Active Substance: CARVEDILOL
  9. NORVASC [Concomitant]
     Active Substance: AMLODIPINE BESYLATE
  10. PREDNISONE. [Concomitant]
     Active Substance: PREDNISONE
  11. SIMVASTIN [Concomitant]
     Active Substance: SIMVASTATIN
  12. SOTALOL. [Concomitant]
     Active Substance: SOTALOL
  13. TORSEMIDE. [Concomitant]
     Active Substance: TORSEMIDE
  14. ASPIRIN. [Concomitant]
     Active Substance: ASPIRIN
  15. GUAIFENESIN. [Concomitant]
     Active Substance: GUAIFENESIN

REACTIONS (6)
  - Swelling face [Not Recovered/Not Resolved]
  - Rales [Recovered/Resolved]
  - Jugular vein distension [Recovered/Resolved]
  - Atrial flutter [Recovered/Resolved]
  - Oedema [Recovered/Resolved]
  - Tachycardia [Not Recovered/Not Resolved]

NARRATIVE: CASE EVENT DATE: 20141005
